FAERS Safety Report 9168058 (Version 1)
Quarter: 2013Q1

REPORT INFORMATION
  Report Type: Spontaneous
  Country: GB (occurrence: None)
  Receive Date: 20130307
  Receipt Date: 20130307
  Transmission Date: 20140127
  Serious: Yes (Other)
  Sender: FDA-Public Use
  Company Number: AUR-APL-2013-01738

PATIENT
  Age: 74 Year
  Sex: Male
  Weight: 76.2 kg

DRUGS (4)
  1. SIMVASTATINE [Suspect]
     Indication: PRODUCT USED FOR UNKNOWN INDICATION
  2. SIMVASTATINE [Suspect]
  3. CALCEOS [Suspect]
     Indication: BODY HEIGHT DECREASED
  4. CALCEOS [Suspect]

REACTIONS (7)
  - Furuncle [None]
  - Carbuncle [None]
  - Rash pustular [None]
  - Pain in extremity [None]
  - Local swelling [None]
  - Inflammation [None]
  - Localised infection [None]
